FAERS Safety Report 23187141 (Version 2)
Quarter: 2023Q4

REPORT INFORMATION
  Report Type: Report from Study
  Country: ID (occurrence: None)
  Receive Date: 20231115
  Receipt Date: 20231117
  Transmission Date: 20240110
  Serious: Yes (Death)
  Sender: FDA-Public Use
  Company Number: 2023A259217

PATIENT
  Age: 25756 Day
  Sex: Female

DRUGS (1)
  1. FASLODEX [Suspect]
     Active Substance: FULVESTRANT
     Route: 030
     Dates: start: 20211014

REACTIONS (1)
  - Death [Fatal]

NARRATIVE: CASE EVENT DATE: 20231027
